FAERS Safety Report 23319718 (Version 1)
Quarter: 2023Q4

REPORT INFORMATION
  Report Type: Spontaneous
  Country: US (occurrence: US)
  Receive Date: 20231220
  Receipt Date: 20231220
  Transmission Date: 20240110
  Serious: No
  Sender: FDA-Public Use
  Company Number: US-PADAGIS-2023PAD01763

PATIENT

DRUGS (11)
  1. BETAMETHASONE DIPROPIONATE USP, 0.05% [Suspect]
     Active Substance: BETAMETHASONE DIPROPIONATE
     Indication: Seborrhoeic dermatitis
     Dosage: UNK, BID
     Route: 065
  2. HYDROCORTISONE [Suspect]
     Active Substance: HYDROCORTISONE
     Indication: Seborrhoeic dermatitis
     Dosage: UNK
     Route: 061
  3. TRIAMCINOLONE ACETONIDE [Suspect]
     Active Substance: TRIAMCINOLONE ACETONIDE
     Indication: Seborrhoeic dermatitis
     Dosage: UNK
     Route: 065
  4. CICLOPIROX [Suspect]
     Active Substance: CICLOPIROX\TOCOPHEROL
     Indication: Seborrhoeic dermatitis
     Dosage: UNK
     Route: 065
  5. KETOCONAZOLE [Suspect]
     Active Substance: KETOCONAZOLE
     Indication: Seborrhoeic dermatitis
     Dosage: UNK, BID
     Route: 065
  6. KETOCONAZOLE [Suspect]
     Active Substance: KETOCONAZOLE
     Dosage: UNK, QD
     Route: 065
  7. IVERMECTIN [Concomitant]
     Active Substance: IVERMECTIN
     Indication: Folliculitis
     Dosage: 21 MG, WEEKLY
     Route: 048
  8. PYRITHIONE ZINC [Concomitant]
     Active Substance: PYRITHIONE ZINC
     Indication: Seborrhoeic dermatitis
     Dosage: UNK 3 TIMES A WEEK FOR MAINTENANCE
     Route: 065
  9. FLUCONAZOLE [Concomitant]
     Active Substance: FLUCONAZOLE
     Indication: Seborrhoeic dermatitis
     Dosage: 200 MG, WEEKLY
     Route: 048
  10. AZELAIC ACID [Concomitant]
     Active Substance: AZELAIC ACID
     Indication: Seborrhoeic dermatitis
     Dosage: UNK, BID
     Route: 065
  11. PIMECROLIMUS [Concomitant]
     Active Substance: PIMECROLIMUS
     Indication: Seborrhoeic dermatitis
     Dosage: UNK, BID CREAM
     Route: 065

REACTIONS (2)
  - Drug ineffective [Unknown]
  - Therapy partial responder [Unknown]
